FAERS Safety Report 11456096 (Version 6)
Quarter: 2021Q1

REPORT INFORMATION
  Report Type: Spontaneous
  Country: US (occurrence: US)
  Receive Date: 20150903
  Receipt Date: 20210310
  Transmission Date: 20210419
  Serious: No
  Sender: FDA-Public Use
  Company Number: US-PFIZER INC-2015287512

PATIENT
  Age: 90 Year
  Sex: Female
  Weight: 58.96 kg

DRUGS (3)
  1. ATENOLOL. [Concomitant]
     Active Substance: ATENOLOL
     Dosage: 25 MG, 1X/DAY
  2. LEVOTHYROXINE. [Concomitant]
     Active Substance: LEVOTHYROXINE
     Dosage: 75 UG, 1X/DAY
  3. ATORVASTATIN CALCIUM. [Suspect]
     Active Substance: ATORVASTATIN CALCIUM
     Indication: BLOOD PRESSURE ABNORMAL
     Dosage: 10 MG, ALTERNATE DAY
     Route: 048

REACTIONS (6)
  - Off label use [Unknown]
  - Hypoacusis [Unknown]
  - Dyspnoea [Unknown]
  - Rash erythematous [Unknown]
  - Rash pruritic [Unknown]
  - Rash [Unknown]
